FAERS Safety Report 6377474-2 (Version None)
Quarter: 2009Q3

REPORT INFORMATION
  Report Type: 
  Country: None (occurrence: None)
  Receive Date: 20090923
  Receipt Date: 20090923
  Transmission Date: 20100115
  Serious: Yes (Hospitalization)
  Sender: FDA-Public Use
  Company Number: None

PATIENT
  Sex: Female
  Weight: 129.1 kg

DRUGS (8)
  1. HEPARIN [Suspect]
     Indication: THROMBOSIS PROPHYLAXIS
     Dosage: 500 U SC Q8H
     Route: 058
     Dates: start: 20090807, end: 20090814
  2. SIMVASTATIN [Concomitant]
  3. ISS LANTUS [Concomitant]
  4. ZAROXOLYN [Concomitant]
  5. CARVEDILOL [Concomitant]
  6. EPOETINAFA [Concomitant]
  7. PHOSLO [Concomitant]
  8. FUROSEMINE [Concomitant]

REACTIONS (1)
  - IDIOPATHIC THROMBOCYTOPENIC PURPURA [None]
